FAERS Safety Report 17972895 (Version 1)
Quarter: 2020Q2

REPORT INFORMATION
  Report Type: Spontaneous
  Country: US (occurrence: US)
  Receive Date: 20200630
  Receipt Date: 20200630
  Transmission Date: 20200714
  Serious: No
  Sender: FDA-Public Use
  Company Number: None

PATIENT
  Age: 64 Year
  Sex: Male
  Weight: 76.2 kg

DRUGS (2)
  1. NEULASTA [Suspect]
     Active Substance: PEGFILGRASTIM
     Indication: NEOPLASM MALIGNANT
     Route: 058
  2. FULPHILA [Concomitant]
     Active Substance: PEGFILGRASTIM-JMDB

REACTIONS (1)
  - Seizure [None]

NARRATIVE: CASE EVENT DATE: 20200630
